FAERS Safety Report 5714823-X (Version None)
Quarter: 2008Q2

REPORT INFORMATION
  Report Type: 
  Country: None (occurrence: None)
  Receive Date: 20080421
  Receipt Date: 20080414
  Transmission Date: 20081010
  Serious: Yes (Other)
  Sender: FDA-Public Use
  Company Number: L08-NZL-01470-01

PATIENT
  Age: 40 Year
  Sex: Male

DRUGS (2)
  1. CARBAMAZEPINE [Suspect]
     Indication: EPILEPSY
  2. FLOXACILLIN SODIUM [Suspect]
     Indication: LACERATION

REACTIONS (3)
  - ANGLE CLOSURE GLAUCOMA [None]
  - ANTICONVULSANT DRUG LEVEL ABOVE THERAPEUTIC [None]
  - CHOROIDAL EFFUSION [None]
